FAERS Safety Report 25063283 (Version 1)
Quarter: 2025Q1

REPORT INFORMATION
  Report Type: Spontaneous
  Country: US (occurrence: None)
  Receive Date: 20250310
  Receipt Date: 20250310
  Transmission Date: 20250409
  Serious: No
  Sender: FDA-CTU
  Company Number: None

PATIENT
  Age: 21 Year
  Sex: Female
  Weight: 54 kg

DRUGS (1)
  1. SULFAMETHOXAZOLE\TRIMETHOPRIM [Suspect]
     Active Substance: SULFAMETHOXAZOLE\TRIMETHOPRIM
     Dosage: FREQUENCY : TWICE A DAY;?
     Route: 048
     Dates: start: 20250227, end: 20250308

REACTIONS (3)
  - Pyrexia [None]
  - Myalgia [None]
  - Pruritus [None]

NARRATIVE: CASE EVENT DATE: 20250305
